FAERS Safety Report 23533469 (Version 1)
Quarter: 2024Q1

REPORT INFORMATION
  Report Type: Spontaneous
  Country: PL (occurrence: PL)
  Receive Date: 20240216
  Receipt Date: 20240216
  Transmission Date: 20240410
  Serious: Yes (Death, Congenital Anomaly, Other)
  Sender: FDA-Public Use
  Company Number: PL-UCBSA-2024005923

PATIENT
  Sex: Male

DRUGS (1)
  1. LEVETIRACETAM [Suspect]
     Active Substance: LEVETIRACETAM
     Indication: Epilepsy
     Dosage: 500 MILLIGRAM, BID (500 MILLIGRAM, 2X/DAY)
     Route: 064

REACTIONS (2)
  - Cleft lip and palate [Fatal]
  - Foetal exposure during pregnancy [Unknown]
